FAERS Safety Report 15065680 (Version 1)
Quarter: 2018Q2

REPORT INFORMATION
  Report Type: Spontaneous
  Country: US (occurrence: US)
  Receive Date: 20180626
  Receipt Date: 20180626
  Transmission Date: 20180711
  Serious: No
  Sender: FDA-Public Use
  Company Number: US-PFIZER INC-2018256178

PATIENT
  Sex: Female

DRUGS (2)
  1. GABAPENTIN. [Suspect]
     Active Substance: GABAPENTIN
     Indication: MUSCLE TWITCHING
  2. GABAPENTIN. [Suspect]
     Active Substance: GABAPENTIN
     Indication: FIBROMYALGIA
     Dosage: 100 MG, DAILY (AS NEEDED)

REACTIONS (5)
  - Product use in unapproved indication [Unknown]
  - Muscle twitching [Unknown]
  - Extra dose administered [Unknown]
  - Drug effective for unapproved indication [Unknown]
  - Condition aggravated [Unknown]
